FAERS Safety Report 9202025 (Version 2)
Quarter: 2013Q2

REPORT INFORMATION
  Report Type: Spontaneous
  Country: US (occurrence: None)
  Receive Date: 20130328
  Receipt Date: 20130411
  Transmission Date: 20140414
  Serious: Yes (Hospitalization)
  Sender: FDA-Public Use
  Company Number: 2013SGN00156

PATIENT
  Age: 45 Year
  Sex: Female
  Weight: 71.4 kg

DRUGS (4)
  1. BRENTUXIMAB VEDOTIN (BRENTUXIMAB VEDOTIN) INJECTION [Suspect]
     Indication: HODGKIN^S DISEASE
     Dates: start: 20120712, end: 20121004
  2. ADRIAMYCIN [Suspect]
     Indication: HODGKIN^S DISEASE
     Dates: start: 20120710, end: 20121004
  3. VINBLASTINE [Suspect]
     Indication: HODGKIN^S DISEASE
     Dates: start: 20120710, end: 20121004
  4. DACARBAZINE [Suspect]
     Indication: HODGKIN^S DISEASE
     Dates: start: 20120710, end: 20121004

REACTIONS (2)
  - Staphylococcal infection [None]
  - Neutropenia [None]
